FAERS Safety Report 25572296 (Version 1)
Quarter: 2025Q3

REPORT INFORMATION
  Report Type: Spontaneous
  Country: US (occurrence: US)
  Receive Date: 20250717
  Receipt Date: 20250717
  Transmission Date: 20251020
  Serious: No
  Sender: LYNE LABORATORIES
  Company Number: US-Lyne Laboratories Inc.-2180689

PATIENT

DRUGS (4)
  1. NYSTATIN [Suspect]
     Active Substance: NYSTATIN
     Indication: Rash
  2. AQUAPHOR HEALING [Concomitant]
     Active Substance: PETROLATUM
  3. NYSTATIN [Concomitant]
     Active Substance: NYSTATIN
  4. AVEENO [Concomitant]
     Active Substance: DIMETHICONE\HOMOSALATE\OCTINOXATE\OCTISALATE\TITANIUM DIOXIDE

REACTIONS (1)
  - Drug ineffective for unapproved indication [Unknown]
